FAERS Safety Report 15527234 (Version 2)
Quarter: 2018Q4

REPORT INFORMATION
  Report Type: Report from Study
  Country: BE (occurrence: BE)
  Receive Date: 20181018
  Receipt Date: 20181029
  Transmission Date: 20190205
  Serious: Yes (Death)
  Sender: FDA-Public Use
  Company Number: PHHY2018BE130622

PATIENT
  Age: 60 Year
  Sex: Male

DRUGS (1)
  1. SANDOSTATINE LAR [Suspect]
     Active Substance: OCTREOTIDE ACETATE
     Indication: GASTROINTESTINAL CARCINOMA
     Dosage: 30 MG, UNK
     Route: 030
     Dates: start: 20180727

REACTIONS (1)
  - Death [Fatal]

NARRATIVE: CASE EVENT DATE: 20180831
